FAERS Safety Report 6389845-9 (Version None)
Quarter: 2009Q4

REPORT INFORMATION
  Report Type: 
  Country: None (occurrence: None)
  Receive Date: 20091006
  Receipt Date: 20080922
  Transmission Date: 20100525
  Serious: No
  Sender: FDA-Public Use
  Company Number: US-BRISTOL-MYERS SQUIBB COMPANY-14347587

PATIENT
  Sex: Female

DRUGS (1)
  1. AVAPRO [Suspect]
     Dates: start: 20080301

REACTIONS (8)
  - CONFUSIONAL STATE [None]
  - DIARRHOEA [None]
  - DYSPHONIA [None]
  - EAR PAIN [None]
  - FATIGUE [None]
  - NASOPHARYNGITIS [None]
  - OROPHARYNGEAL PAIN [None]
  - SENSATION OF HEAVINESS [None]
